FAERS Safety Report 8430678-7 (Version None)
Quarter: 2012Q2

REPORT INFORMATION
  Report Type: 
  Country: None (occurrence: None)
  Receive Date: 20120323
  Receipt Date: 20111129
  Transmission Date: 20120825
  Serious: Yes (Other)
  Sender: FDA-Public Use
  Company Number: 163-21880-11061017

PATIENT
  Age: 69 Year
  Sex: Female
  Weight: 107.8 kg

DRUGS (1)
  1. REVLIMID [Suspect]
     Indication: MULTIPLE MYELOMA
     Dosage: 5 MG, DAILY X 21 DAYS, 7 DAYS OFF, PO
     Route: 048
     Dates: start: 20100707

REACTIONS (2)
  - HYPOMAGNESAEMIA [None]
  - MUSCLE SPASMS [None]
